FAERS Safety Report 13714705 (Version 1)
Quarter: 2017Q3

REPORT INFORMATION
  Report Type: Spontaneous
  Country: US (occurrence: US)
  Receive Date: 20170704
  Receipt Date: 20170704
  Transmission Date: 20171127
  Serious: No
  Sender: FDA-Public Use
  Company Number: US-JNJFOC-20170506154

PATIENT
  Sex: Female

DRUGS (1)
  1. INVOKANA [Suspect]
     Active Substance: CANAGLIFLOZIN
     Indication: PRODUCT USED FOR UNKNOWN INDICATION
     Dosage: START DATE: ABOUT AN YEAR AGO AT THE TIME OF REPORT AND STOP DATE: 1-2 MONTHS LATER
     Route: 065

REACTIONS (2)
  - Rash [Unknown]
  - Fungal infection [Unknown]
